FAERS Safety Report 5086747-5 (Version None)
Quarter: 2006Q3

REPORT INFORMATION
  Report Type: 
  Country: None (occurrence: None)
  Receive Date: 20060823
  Receipt Date: 20060814
  Transmission Date: 20061208
  Serious: Yes (Other)
  Sender: FDA-Public Use
  Company Number: IE-JNJFOC-20060803500

PATIENT
  Age: 2 Decade
  Sex: Female

DRUGS (3)
  1. RISPERDAL [Suspect]
     Indication: DRUG USE FOR UNKNOWN INDICATION
  2. VALPROATE SODIUM [Concomitant]
  3. LITHIUM CARBONATE [Concomitant]

REACTIONS (1)
  - ANAEMIA [None]
